FAERS Safety Report 15228735 (Version 1)
Quarter: 2018Q3

REPORT INFORMATION
  Report Type: Spontaneous
  Country: CN (occurrence: CN)
  Receive Date: 20180801
  Receipt Date: 20180801
  Transmission Date: 20181010
  Serious: Yes (Hospitalization)
  Sender: FDA-Public Use
  Company Number: CN-PFIZER INC-2018309312

PATIENT
  Age: 71 Year
  Sex: Male
  Weight: 79 kg

DRUGS (2)
  1. CYTOSAR [Suspect]
     Active Substance: CYTARABINE
     Indication: CHEMOTHERAPY
     Dosage: 20 MG, 2X/DAY(Q12H)
     Route: 030
     Dates: start: 20180502
  2. ZAVEDOS [Suspect]
     Active Substance: IDARUBICIN
     Indication: CHEMOTHERAPY
     Dosage: 5 MG, 1X/DAY(QD)
     Route: 041
     Dates: start: 20180502, end: 20180506

REACTIONS (1)
  - Bone marrow failure [Recovering/Resolving]

NARRATIVE: CASE EVENT DATE: 20180511
